FAERS Safety Report 4944409-6 (Version None)
Quarter: 2006Q1

REPORT INFORMATION
  Report Type: 
  Country: None (occurrence: None)
  Receive Date: 20060315
  Receipt Date: 20050829
  Transmission Date: 20060701
  Serious: Yes (Hospitalization)
  Sender: FDA-Public Use
  Company Number: US-MERCK-0508USA04761

PATIENT
  Age: 53 Year
  Sex: Female
  Weight: 107 kg

DRUGS (5)
  1. VIOXX [Suspect]
     Indication: OSTEOARTHRITIS
     Route: 048
     Dates: start: 20000101
  2. VIOXX [Suspect]
     Indication: RHEUMATOID ARTHRITIS
     Route: 048
     Dates: start: 20000101
  3. TYLENOL (CAPLET) [Concomitant]
     Route: 065
  4. ADVIL [Concomitant]
     Route: 065
  5. ASPIRIN [Concomitant]
     Route: 065

REACTIONS (3)
  - CEREBROVASCULAR ACCIDENT [None]
  - EYE DISORDER [None]
  - VASCULAR INJURY [None]
